FAERS Safety Report 5051483-8 (Version None)
Quarter: 2006Q3

REPORT INFORMATION
  Report Type: 
  Country: None (occurrence: None)
  Receive Date: 20060710
  Receipt Date: 20060701
  Transmission Date: 20061208
  Serious: Yes (Hospitalization, Other)
  Sender: FDA-Public Use
  Company Number: 2006-05-1546

PATIENT
  Age: 51 Year
  Sex: Male

DRUGS (9)
  1. PEG-INTRON [Suspect]
     Indication: HEPATITIS C
     Dosage: SUBCUTANEOUS
     Route: 058
     Dates: start: 20060429, end: 20060501
  2. RIBAVIRIN [Suspect]
     Indication: HEPATITIS C
     Dosage: ORAL
     Route: 048
     Dates: start: 20060429, end: 20060501
  3. PAXIL [Suspect]
     Indication: DEPRESSION
     Dosage: 10 MG ORAL
     Route: 048
     Dates: end: 20060101
  4. NEORAL [Concomitant]
  5. CALCIUM/VITAMIN D TABLETS [Concomitant]
  6. CELLCEPT [Concomitant]
  7. MAGNESIUM OXIDE TABLETS [Concomitant]
  8. URSODEOXYCHOLIC ACID CAPSULES [Concomitant]
  9. PROTONIX (PANTOPRAZOLE SODIUM) EXTENDED RELEASE [Concomitant]

REACTIONS (7)
  - CELLULITIS [None]
  - DEPRESSION [None]
  - HEADACHE [None]
  - INSOMNIA [None]
  - JAUNDICE [None]
  - RED BLOOD CELL COUNT DECREASED [None]
  - WHITE BLOOD CELL COUNT DECREASED [None]
